FAERS Safety Report 15790911 (Version 1)
Quarter: 2019Q1

REPORT INFORMATION
  Report Type: Spontaneous
  Country: CH (occurrence: CH)
  Receive Date: 20190104
  Receipt Date: 20190104
  Transmission Date: 20190417
  Serious: Yes (Other)
  Sender: FDA-Public Use
  Company Number: CH-OTSUKA-2018_036888

PATIENT
  Age: 17 Year
  Sex: Female
  Weight: 62.8 kg

DRUGS (7)
  1. AKINETON [Suspect]
     Active Substance: BIPERIDEN HYDROCHLORIDE
     Dosage: 0.5 MG, BID [0.5-0-0-0.5]
     Route: 065
     Dates: start: 20181119, end: 20181126
  2. ABILIFY [Suspect]
     Active Substance: ARIPIPRAZOLE
     Indication: PRODUCT USED FOR UNKNOWN INDICATION
     Dosage: 12 MG, QD
     Route: 048
     Dates: start: 20181023, end: 20181107
  3. AKINETON [Suspect]
     Active Substance: BIPERIDEN HYDROCHLORIDE
     Dosage: 0.5 MG, TID [0.5-0.5-0-0.5]
     Route: 065
     Dates: start: 20181115, end: 20181119
  4. AKINETON [Suspect]
     Active Substance: BIPERIDEN HYDROCHLORIDE
     Indication: PRODUCT USED FOR UNKNOWN INDICATION
     Dosage: 2 MG, QID
     Route: 065
     Dates: start: 20181026, end: 20181113
  5. ARIPIPRAZOLE. [Suspect]
     Active Substance: ARIPIPRAZOLE
     Indication: PRODUCT USED FOR UNKNOWN INDICATION
     Dosage: UNK
     Route: 065
  6. AKINETON [Suspect]
     Active Substance: BIPERIDEN HYDROCHLORIDE
     Dosage: 0.5 MG, BID [0.5-0-0.5-0]
     Route: 065
     Dates: start: 20181126
  7. AKINETON [Suspect]
     Active Substance: BIPERIDEN HYDROCHLORIDE
     Dosage: 0.5 MG, QID [0.5-0.5-0.5-0.5]
     Route: 065
     Dates: start: 20181114

REACTIONS (4)
  - Drug effect incomplete [Unknown]
  - Neuroleptic malignant syndrome [Unknown]
  - Encephalitis autoimmune [Unknown]
  - Extrapyramidal disorder [Unknown]

NARRATIVE: CASE EVENT DATE: 20181126
